FAERS Safety Report 18847240 (Version 1)
Quarter: 2021Q1

REPORT INFORMATION
  Report Type: Spontaneous
  Country: BR (occurrence: BR)
  Receive Date: 20210204
  Receipt Date: 20210204
  Transmission Date: 20210419
  Serious: Yes (Other)
  Sender: FDA-Public Use
  Company Number: BR-ABBVIE-21K-020-3753338-00

PATIENT
  Sex: Female
  Weight: 75 kg

DRUGS (3)
  1. HUMIRA [Suspect]
     Active Substance: ADALIMUMAB
     Route: 058
     Dates: end: 20201221
  2. HUMIRA [Suspect]
     Active Substance: ADALIMUMAB
     Dosage: LOADING DOSE WEEK 2
     Route: 058
  3. HUMIRA [Suspect]
     Active Substance: ADALIMUMAB
     Indication: PSORIASIS
     Dosage: LOADING DOSE WEEK 0
     Route: 058
     Dates: start: 2011, end: 2011

REACTIONS (23)
  - Skin mass [Recovered/Resolved]
  - Venous occlusion [Unknown]
  - Body height decreased [Unknown]
  - Dermatitis contact [Unknown]
  - Inflammation [Recovering/Resolving]
  - Wound complication [Recovered/Resolved]
  - Pain [Recovered/Resolved]
  - Varicose vein [Not Recovered/Not Resolved]
  - Erythema [Recovered/Resolved]
  - Hepatic enzyme increased [Not Recovered/Not Resolved]
  - Hypertensive crisis [Unknown]
  - Pruritus allergic [Recovering/Resolving]
  - Blood triglycerides increased [Unknown]
  - Skin mass [Recovered/Resolved]
  - Diabetes mellitus [Unknown]
  - Swelling [Recovered/Resolved]
  - Blood cholesterol increased [Unknown]
  - Skin discomfort [Recovered/Resolved]
  - Purulent discharge [Recovered/Resolved]
  - Vein disorder [Not Recovered/Not Resolved]
  - Wound haemorrhage [Recovered/Resolved]
  - Hyperglycaemia [Unknown]
  - Impaired healing [Unknown]

NARRATIVE: CASE EVENT DATE: 2016
